FAERS Safety Report 20716955 (Version 1)
Quarter: 2022Q2

REPORT INFORMATION
  Report Type: Report from Study
  Country: CA (occurrence: CA)
  Receive Date: 20220416
  Receipt Date: 20220416
  Transmission Date: 20220720
  Serious: Yes (Other)
  Sender: FDA-Public Use
  Company Number: CA-BAUSCH-BL-2022-008810

PATIENT

DRUGS (3)
  1. CONTRAVE [Suspect]
     Active Substance: BUPROPION HYDROCHLORIDE\NALTREXONE HYDROCHLORIDE
     Indication: Weight control
     Dosage: 90/8MG; 1 TAB Q AM (IN THE MORNING)
     Route: 048
     Dates: start: 20220324, end: 202203
  2. CONTRAVE [Suspect]
     Active Substance: BUPROPION HYDROCHLORIDE\NALTREXONE HYDROCHLORIDE
     Dosage: 90/8MG; 1 TAB Q AM (IN THE MORNING), 1 TAB Q PM (IN THE EVENING)
     Route: 048
     Dates: start: 20220331, end: 2022
  3. CONTRAVE [Suspect]
     Active Substance: BUPROPION HYDROCHLORIDE\NALTREXONE HYDROCHLORIDE
     Dosage: 90/8MG; 2 TAB Q AM (IN THE MORNING), 1 TAB Q PM (IN THE EVENING)
     Route: 048
     Dates: start: 20220307

REACTIONS (4)
  - Colostomy [Unknown]
  - Feeding disorder [Unknown]
  - Constipation [Recovered/Resolved]
  - Diarrhoea [Unknown]

NARRATIVE: CASE EVENT DATE: 20220404
